FAERS Safety Report 21322660 (Version 2)
Quarter: 2022Q4

REPORT INFORMATION
  Report Type: Spontaneous
  Country: US (occurrence: US)
  Receive Date: 20220912
  Receipt Date: 20221102
  Transmission Date: 20230113
  Serious: Yes (Other)
  Sender: FDA-Public Use
  Company Number: US-JNJFOC-20220914801

PATIENT
  Age: 68 Year
  Sex: Male

DRUGS (9)
  1. ELMIRON [Suspect]
     Active Substance: PENTOSAN POLYSULFATE SODIUM
     Indication: Cystitis interstitial
     Route: 048
     Dates: start: 2007, end: 2009
  2. ELMIRON [Suspect]
     Active Substance: PENTOSAN POLYSULFATE SODIUM
     Route: 048
     Dates: start: 200801, end: 201112
  3. METHADONE [Concomitant]
     Active Substance: METHADONE HYDROCHLORIDE
     Indication: Analgesic therapy
     Dates: start: 200906, end: 202006
  4. HYDROCODONE [Concomitant]
     Active Substance: HYDROCODONE
     Indication: Analgesic therapy
     Dates: start: 200807, end: 201807
  5. FLUTICASONE [Concomitant]
     Active Substance: FLUTICASONE
     Route: 045
     Dates: start: 201008, end: 201606
  6. RANITIDINE [Concomitant]
     Active Substance: RANITIDINE
     Indication: Antiallergic therapy
     Dates: start: 200903, end: 201604
  7. RANITIDINE [Concomitant]
     Active Substance: RANITIDINE
     Indication: Antacid therapy
  8. LEVEMIR [Concomitant]
     Active Substance: INSULIN DETEMIR
     Indication: Diabetes mellitus
     Dates: start: 201307, end: 201608
  9. LISINOPRIL [Concomitant]
     Active Substance: LISINOPRIL
     Indication: Hypertension
     Dates: start: 201111, end: 201611

REACTIONS (1)
  - Retinal pigmentation [Unknown]

NARRATIVE: CASE EVENT DATE: 20140701
